FAERS Safety Report 5755008-0 (Version None)
Quarter: 2008Q2

REPORT INFORMATION
  Report Type: 
  Country: None (occurrence: None)
  Receive Date: 20080527
  Receipt Date: 20080512
  Transmission Date: 20081010
  Serious: Yes (Hospitalization)
  Sender: FDA-Public Use
  Company Number: 233264J08USA

PATIENT
  Age: 28 Year
  Sex: Male
  Weight: 78.0187 kg

DRUGS (2)
  1. REBIF [Suspect]
     Indication: MULTIPLE SCLEROSIS
     Dosage: 44 MCG, 3 IN 1 WEEKS, SUBCUTANEOUS
     Route: 058
     Dates: start: 20070801, end: 20080402
  2. CYMBALTA [Concomitant]

REACTIONS (7)
  - INFUSION SITE ERYTHEMA [None]
  - INJECTION SITE ABSCESS [None]
  - INJECTION SITE INFECTION [None]
  - INJECTION SITE PAIN [None]
  - INJECTION SITE SCAB [None]
  - INJECTION SITE SWELLING [None]
  - STAPHYLOCOCCAL INFECTION [None]
